FAERS Safety Report 15207570 (Version 1)
Quarter: 2018Q3

REPORT INFORMATION
  Report Type: Spontaneous
  Country: GE (occurrence: GE)
  Receive Date: 20180727
  Receipt Date: 20180727
  Transmission Date: 20181010
  Serious: Yes (Hospitalization)
  Sender: FDA-Public Use
  Company Number: PHHY2018GE050807

PATIENT
  Age: 46 Year
  Sex: Male
  Weight: 86 kg

DRUGS (7)
  1. LAMPRENE [Suspect]
     Active Substance: CLOFAZIMINE
     Indication: PULMONARY TUBERCULOSIS
     Dosage: 100 MG, QD
     Route: 065
     Dates: start: 20170313, end: 20180213
  2. CYCLOSERINE. [Suspect]
     Active Substance: CYCLOSERINE
     Dosage: UNK
     Route: 065
     Dates: start: 20180318, end: 20180322
  3. LINEZOLID. [Suspect]
     Active Substance: LINEZOLID
     Dosage: UNK
     Route: 065
     Dates: start: 20180318, end: 20180322
  4. CYCLOSERINE. [Suspect]
     Active Substance: CYCLOSERINE
     Indication: PULMONARY TUBERCULOSIS
     Dosage: 750 MG, QD
     Route: 065
     Dates: start: 20170313, end: 20180213
  5. LINEZOLID. [Suspect]
     Active Substance: LINEZOLID
     Indication: PULMONARY TUBERCULOSIS
     Dosage: 600 MG, QD
     Route: 065
     Dates: start: 20170313, end: 20180213
  6. LAMPRENE [Suspect]
     Active Substance: CLOFAZIMINE
     Dosage: UNK
     Route: 065
     Dates: start: 20180318, end: 20180322
  7. DELAMANID [Suspect]
     Active Substance: DELAMANID
     Indication: PULMONARY TUBERCULOSIS
     Dosage: UNK
     Route: 065
     Dates: start: 201703, end: 20170827

REACTIONS (8)
  - Hepatotoxicity [Recovered/Resolved with Sequelae]
  - Chromaturia [Unknown]
  - Nausea [Unknown]
  - General physical health deterioration [Unknown]
  - Abdominal pain [Unknown]
  - Chest discomfort [Unknown]
  - Hepatic cirrhosis [Unknown]
  - Asthenia [Unknown]

NARRATIVE: CASE EVENT DATE: 20180206
